FAERS Safety Report 9353726 (Version 1)
Quarter: 2013Q2

REPORT INFORMATION
  Report Type: Spontaneous
  Country: US (occurrence: None)
  Receive Date: 20130617
  Receipt Date: 20130617
  Transmission Date: 20140414
  Serious: Yes (Other)
  Sender: FDA-Public Use
  Company Number: None

PATIENT
  Sex: Male

DRUGS (4)
  1. DEXEDRINE [Suspect]
     Indication: PSYCHOMOTOR HYPERACTIVITY
  2. DEXEDRINE [Suspect]
  3. RITALIN [Suspect]
     Indication: PSYCHOMOTOR HYPERACTIVITY
  4. RITALIN [Suspect]

REACTIONS (3)
  - Affective disorder [None]
  - Cognitive disorder [None]
  - Condition aggravated [None]
